FAERS Safety Report 20450111 (Version 2)
Quarter: 2022Q1

REPORT INFORMATION
  Report Type: Spontaneous
  Country: US (occurrence: US)
  Receive Date: 20220209
  Receipt Date: 20220308
  Transmission Date: 20220423
  Serious: No
  Sender: FDA-Public Use
  Company Number: US-SA-SAC20220203000158

PATIENT
  Age: 62 Year
  Sex: Female

DRUGS (8)
  1. DUPIXENT [Suspect]
     Active Substance: DUPILUMAB
     Indication: Nasal polyps
     Dosage: 300 MG, QOW
     Route: 058
  2. MELOXICAM [Concomitant]
     Active Substance: MELOXICAM
     Dosage: UNK
  3. MOTRIN IB [Concomitant]
     Active Substance: IBUPROFEN
     Dosage: UNK
  4. DOXYCYCLINE HYCLATE [Concomitant]
     Active Substance: DOXYCYCLINE HYCLATE
     Dosage: UNK
  5. TRAZODONE HCL [Concomitant]
     Active Substance: TRAZODONE HYDROCHLORIDE
     Dosage: UNK
  6. LEXAPRO [Concomitant]
     Active Substance: ESCITALOPRAM OXALATE
     Dosage: UNK
  7. LORAZEPAM [Concomitant]
     Active Substance: LORAZEPAM
     Dosage: UNK
  8. KEPPRA [Concomitant]
     Active Substance: LEVETIRACETAM
     Dosage: UNK

REACTIONS (5)
  - Lacrimation increased [Recovering/Resolving]
  - Periorbital swelling [Recovering/Resolving]
  - Eye irritation [Unknown]
  - Dry eye [Unknown]
  - Product use in unapproved indication [Unknown]
